FAERS Safety Report 11078949 (Version 1)
Quarter: 2015Q2

REPORT INFORMATION
  Report Type: Spontaneous
  Country: US (occurrence: None)
  Receive Date: 20150429
  Receipt Date: 20150429
  Transmission Date: 20150821
  Serious: Yes (Life-Threatening, Hospitalization)
  Sender: FDA-Public Use
  Company Number: None

PATIENT
  Age: 42 Year
  Sex: Female
  Weight: 82 kg

DRUGS (6)
  1. NAPROSYN [Suspect]
     Active Substance: NAPROXEN
     Indication: PROCEDURAL PAIN
     Route: 048
     Dates: start: 20150415, end: 20150420
  2. LABETALOL [Concomitant]
     Active Substance: LABETALOL\LABETALOL HYDROCHLORIDE
  3. NAPROSYN [Suspect]
     Active Substance: NAPROXEN
     Route: 048
     Dates: start: 20150415, end: 20150420
  4. CITRACAL D MVI (FLINTSTONES CHEWABLE) [Concomitant]
  5. VITAMIN B12 [Concomitant]
     Active Substance: CYANOCOBALAMIN
  6. PRENTAL PLUS NIFEDIPINE [Concomitant]

REACTIONS (4)
  - Haematochezia [None]
  - Gastrointestinal anastomotic complication [None]
  - Haematemesis [None]
  - Anastomotic ulcer [None]

NARRATIVE: CASE EVENT DATE: 20150421
